FAERS Safety Report 17005513 (Version 2)
Quarter: 2019Q4

REPORT INFORMATION
  Report Type: Spontaneous
  Country: US (occurrence: US)
  Receive Date: 20191107
  Receipt Date: 20191212
  Transmission Date: 20200122
  Serious: Yes (Hospitalization)
  Sender: FDA-Public Use
  Company Number: US-STRONGBRIDGE BIOPHARMA-2019-STR-000292

PATIENT
  Sex: Male

DRUGS (1)
  1. KEVEYIS [Suspect]
     Active Substance: DICHLORPHENAMIDE
     Indication: FAMILIAL PERIODIC PARALYSIS
     Dosage: 50 MG, BID
     Route: 048
     Dates: start: 20190815

REACTIONS (5)
  - Viral infection [Recovered/Resolved]
  - Pyrexia [Recovering/Resolving]
  - Paraesthesia [Unknown]
  - Nasopharyngitis [Recovering/Resolving]
  - Bronchopulmonary disease [Recovering/Resolving]
